FAERS Safety Report 16854404 (Version 1)
Quarter: 2019Q3

REPORT INFORMATION
  Report Type: Spontaneous
  Country: ES (occurrence: ES)
  Receive Date: 20190926
  Receipt Date: 20190926
  Transmission Date: 20191005
  Serious: Yes (Hospitalization, Other)
  Sender: FDA-Public Use
  Company Number: ES-AUROBINDO-AUR-APL-2019-061601

PATIENT
  Age: 65 Year
  Sex: Female

DRUGS (2)
  1. PARACETAMOL [Suspect]
     Active Substance: ACETAMINOPHEN
     Indication: OSTEOARTHRITIS
     Dosage: 3 GRAM, DAILY
     Route: 048
     Dates: start: 20190109, end: 20190116
  2. DENVAR [Suspect]
     Active Substance: CEFIXIME
     Indication: URINARY TRACT INFECTION
     Dosage: 400 MILLIGRAM, DAILY
     Route: 048
     Dates: start: 20190109, end: 20190117

REACTIONS (1)
  - Tubulointerstitial nephritis [Recovering/Resolving]

NARRATIVE: CASE EVENT DATE: 20190117
